FAERS Safety Report 6654459-X (Version None)
Quarter: 2010Q1

REPORT INFORMATION
  Report Type: 
  Country: None (occurrence: None)
  Receive Date: 20100326
  Receipt Date: 20100318
  Transmission Date: 20100710
  Serious: Yes (Death)
  Sender: FDA-Public Use
  Company Number: GXKR2010GB03264

PATIENT
  Age: 42 Year
  Sex: Male

DRUGS (4)
  1. CIPROFLOXACIN [Suspect]
  2. FLUCONAZOLE (NGX) [Suspect]
  3. METRONIDAZOLE [Suspect]
  4. PHENYTOIN [Suspect]

REACTIONS (2)
  - ACUTE HEPATIC FAILURE [None]
  - IDIOSYNCRATIC DRUG REACTION [None]
